FAERS Safety Report 25067773 (Version 3)
Quarter: 2025Q4

REPORT INFORMATION
  Report Type: Spontaneous
  Country: EU (occurrence: EU)
  Receive Date: 20250312
  Receipt Date: 20251022
  Transmission Date: 20260118
  Serious: Yes (Other)
  Sender: AUROBINDO
  Company Number: EU-ELI_LILLY_AND_COMPANY-ES202406012944

PATIENT
  Age: 76 Year
  Sex: Female

DRUGS (8)
  1. LETROZOLE [Suspect]
     Active Substance: LETROZOLE
     Indication: Breast cancer
     Dosage: UNK
     Route: 065
     Dates: start: 202404
  2. ABEMACICLIB [Suspect]
     Active Substance: ABEMACICLIB
     Indication: Breast cancer
     Dosage: 100 MILLIGRAM
     Route: 048
  3. ABEMACICLIB [Suspect]
     Active Substance: ABEMACICLIB
     Dosage: 100 MILLIGRAM
     Route: 048
     Dates: start: 202404
  4. ABEMACICLIB [Suspect]
     Active Substance: ABEMACICLIB
     Dosage: 100 MILLIGRAM
     Route: 048
  5. ABEMACICLIB [Suspect]
     Active Substance: ABEMACICLIB
     Dosage: 50 MILLIGRAM
     Route: 048
     Dates: start: 202503
  6. ELIQUIS [Concomitant]
     Active Substance: APIXABAN
     Indication: Thrombosis
     Dosage: UNK
     Route: 065
  7. VITAMIN B12 [Concomitant]
     Active Substance: CYANOCOBALAMIN
     Indication: Product used for unknown indication
     Dosage: EVERY 15 DAYS
     Route: 065
  8. Rectogesic [Concomitant]
     Indication: Prophylaxis
     Dosage: UNK
     Route: 065

REACTIONS (28)
  - Intestinal prolapse [Recovering/Resolving]
  - Abnormal faeces [Recovering/Resolving]
  - Chromaturia [Recovering/Resolving]
  - Constipation [Recovering/Resolving]
  - Cyst [Recovering/Resolving]
  - Diarrhoea [Recovered/Resolved]
  - Erythema [Recovering/Resolving]
  - Faeces discoloured [Recovering/Resolving]
  - Faeces hard [Recovering/Resolving]
  - Hyperhidrosis [Recovering/Resolving]
  - Haemorrhoids [Recovering/Resolving]
  - Haemorrhoidal haemorrhage [Recovering/Resolving]
  - Hot flush [Recovering/Resolving]
  - Hepatic cyst [Recovered/Resolved]
  - Limb discomfort [Recovering/Resolving]
  - Nervousness [Recovering/Resolving]
  - Pruritus [Recovered/Resolved]
  - Peripheral swelling [Recovered/Resolved]
  - Pain in extremity [Recovering/Resolving]
  - Weight increased [Recovering/Resolving]
  - Somnolence [Recovering/Resolving]
  - Sleep disorder [Recovering/Resolving]
  - Stress [Recovering/Resolving]
  - Tooth fracture [Recovering/Resolving]
  - Varicose vein [Recovering/Resolving]
  - Anal fissure [Recovering/Resolving]
  - Blood urine present [Recovered/Resolved]
  - Urinary tract infection [Recovered/Resolved]

NARRATIVE: CASE EVENT DATE: 20240719
